FAERS Safety Report 17731656 (Version 4)
Quarter: 2023Q2

REPORT INFORMATION
  Report Type: Other
  Country: US (occurrence: None)
  Receive Date: 20200501
  Receipt Date: 20230615
  Transmission Date: 20230721
  Serious: Yes (Hospitalization)
  Sender: FDA-Public Use
  Company Number: US-ROCHE-2590378

PATIENT
  Sex: Female
  Weight: 83.082 kg

DRUGS (6)
  1. OCREVUS [Suspect]
     Active Substance: OCRELIZUMAB
     Indication: Primary progressive multiple sclerosis
     Route: 042
     Dates: start: 201705
  2. CYMBALTA [Concomitant]
     Active Substance: DULOXETINE HYDROCHLORIDE
     Indication: Pain
     Route: 048
  3. TIZANIDINE [Concomitant]
     Active Substance: TIZANIDINE
     Indication: Muscle relaxant therapy
     Route: 048
  4. TRAMADOL [Concomitant]
     Active Substance: TRAMADOL
     Indication: Pain
     Route: 048
  5. METHOCARBAMOL [Concomitant]
     Active Substance: METHOCARBAMOL
     Indication: Muscle relaxant therapy
     Dosage: 1500 UNIT NOT REPORTED
     Route: 048
  6. OSELTAMIVIR [Concomitant]
     Active Substance: OSELTAMIVIR
     Indication: Influenza
     Dates: start: 202001, end: 202001

REACTIONS (18)
  - Sciatica [Not Recovered/Not Resolved]
  - White blood cell count increased [Recovered/Resolved]
  - Infection [Recovered/Resolved]
  - Oral herpes [Not Recovered/Not Resolved]
  - Hypotension [Recovered/Resolved]
  - Influenza [Recovered/Resolved]
  - Fatigue [Recovered/Resolved]
  - Pain [Not Recovered/Not Resolved]
  - Seizure [Recovered/Resolved]
  - Ulcer [Recovered/Resolved]
  - Osteomyelitis [Recovered/Resolved]
  - Loss of consciousness [Recovered/Resolved]
  - Clostridium difficile infection [Recovered/Resolved]
  - Muscle spasms [Recovered/Resolved]
  - Blood potassium increased [Recovered/Resolved]
  - Bladder spasm [Recovered/Resolved]
  - Incontinence [Recovered/Resolved with Sequelae]
  - Hypothyroidism [Not Recovered/Not Resolved]

NARRATIVE: CASE EVENT DATE: 20170501
